FAERS Safety Report 9110028 (Version 3)
Quarter: 2013Q2

REPORT INFORMATION
  Report Type: Report from Study
  Country: CH (occurrence: CH)
  Receive Date: 20130222
  Receipt Date: 20130517
  Transmission Date: 20140414
  Serious: Yes (Hospitalization)
  Sender: FDA-Public Use
  Company Number: CH-BRISTOL-MYERS SQUIBB COMPANY-17404906

PATIENT
  Age: 70 Year
  Sex: Male

DRUGS (3)
  1. CETUXIMAB [Suspect]
     Indication: OESOPHAGEAL CARCINOMA
     Dosage: RECENT DOSE(800MG/M2):30JAN13
     Route: 042
     Dates: start: 20121119
  2. CISPLATIN [Suspect]
     Indication: OESOPHAGEAL CARCINOMA
     Dosage: RECENT DOSE(56MG/M2):30JAN13
     Route: 042
     Dates: start: 20121119
  3. DOCETAXEL [Suspect]
     Indication: OESOPHAGEAL CARCINOMA
     Dosage: RECENT DOSE(45MG/M2):30JAN13
     Route: 042
     Dates: start: 20121119

REACTIONS (2)
  - Fatigue [Recovered/Resolved]
  - Vertigo [Recovered/Resolved]
